FAERS Safety Report 5639168-8 (Version None)
Quarter: 2008Q1

REPORT INFORMATION
  Report Type: 
  Country: None (occurrence: None)
  Receive Date: 20080222
  Receipt Date: 20080206
  Transmission Date: 20080703
  Serious: Yes (Hospitalization)
  Sender: FDA-Public Use
  Company Number: 02100-EUR-07-0164

PATIENT
  Age: 74 Year
  Sex: Male

DRUGS (8)
  1. PLETAL [Suspect]
     Indication: INTERMITTENT CLAUDICATION
     Dosage: 100 MG, BID; ORAL
     Route: 048
     Dates: start: 20070531
  2. PHENPROCOUMON                    (PHENPROCOUMON) [Concomitant]
  3. METOPROLOL SUCCINATE [Concomitant]
  4. RAMIPRIL- BETA-COMP [Concomitant]
  5. TORSEMIDE [Concomitant]
  6. LERCANIDIPINE [Concomitant]
  7. SIMVASTATIN [Concomitant]
  8. INSULIN GLARGINE         (INSULIN GLARGINE) [Concomitant]

REACTIONS (3)
  - ARRHYTHMIA [None]
  - ATRIAL FIBRILLATION [None]
  - PULMONARY OEDEMA [None]
